FAERS Safety Report 5066836-1 (Version None)
Quarter: 2006Q3

REPORT INFORMATION
  Report Type: 
  Country: None (occurrence: None)
  Receive Date: 20060726
  Receipt Date: 20060714
  Transmission Date: 20061208
  Serious: Yes (Other)
  Sender: FDA-Public Use
  Company Number: B0431845A

PATIENT
  Sex: Female

DRUGS (5)
  1. DARAPRIM [Suspect]
     Indication: EYE INFECTION TOXOPLASMAL
     Dosage: 25 MG / PER DAY /
  2. MEPRON [Suspect]
     Indication: EYE INFECTION TOXOPLASMAL
     Dosage: 750 MG / THREE TIME PER DAY
  3. SULFADIAZINE [Suspect]
     Indication: EYE INFECTION TOXOPLASMAL
     Dosage: 1000 MG / FOUR TIMES PER DAY /
  4. PREDNISONE [Concomitant]
  5. CLINDAMYCIN [Concomitant]

REACTIONS (8)
  - CONDITION AGGRAVATED [None]
  - DERMATITIS ALLERGIC [None]
  - DIZZINESS [None]
  - DRUG RESISTANCE [None]
  - EYE INFECTION TOXOPLASMAL [None]
  - EYELID OEDEMA [None]
  - LARYNGEAL OEDEMA [None]
  - VERTIGO [None]
